FAERS Safety Report 6528610-6 (Version None)
Quarter: 2010Q1

REPORT INFORMATION
  Report Type: 
  Country: None (occurrence: None)
  Receive Date: 20100106
  Receipt Date: 20091229
  Transmission Date: 20100710
  Serious: Yes (Life-Threatening, Hospitalization, Other)
  Sender: FDA-Public Use
  Company Number: ZM-BRISTOL-MYERS SQUIBB COMPANY-14885479

PATIENT
  Age: 48 Year
  Sex: Female
  Weight: 52 kg

DRUGS (9)
  1. EFAVIRENZ [Suspect]
     Indication: HIV INFECTION
     Dosage: INTERRUPTED ON 18JUL2009;RESTARTED ON 14AUG2009;LAST DOSE ON 16SEP09,23DEC09;02JUN09-12AUG09
     Route: 048
     Dates: start: 20090602
  2. TENOFOVIR DISOPROXIL FUMARATE [Suspect]
     Indication: HIV INFECTION
     Dosage: INTERRUPTED ON 18JUL2009;RESTARTED ON 14AUG2009;LAST DOSE ON 16SEP09,23DEC09
     Route: 048
     Dates: start: 20090602
  3. EMTRICITABINE [Suspect]
     Indication: HIV INFECTION
     Dosage: INTERRUPTED ON 18JUL2009;RESTARTED ON 14AUG2009;LAST DOSE ON 16SEP09,23DEC09
     Route: 048
     Dates: start: 20090602
  4. ISONIAZID [Concomitant]
     Indication: TUBERCULOSIS
     Route: 048
  5. ETHAMBUTOL HYDROCHLORIDE [Concomitant]
     Indication: TUBERCULOSIS
     Route: 048
  6. DAPSONE [Concomitant]
  7. FLUCONAZOLE [Concomitant]
     Dates: start: 20090708
  8. MULTI-VITAMIN [Concomitant]
     Dosage: 1 D.F= 1 TAB
  9. PYRIDOXINE [Concomitant]

REACTIONS (5)
  - ASTHENIA [None]
  - HEPATITIS [None]
  - NAUSEA [None]
  - NEUTROPENIA [None]
  - VOMITING [None]
